FAERS Safety Report 22362424 (Version 2)
Quarter: 2023Q2

REPORT INFORMATION
  Report Type: Spontaneous
  Country: US (occurrence: US)
  Receive Date: 20230524
  Receipt Date: 20230526
  Transmission Date: 20230722
  Serious: No
  Sender: FDA-Public Use
  Company Number: US-PFIZER INC-PV202300058528

PATIENT
  Age: 48 Year
  Sex: Female
  Weight: 69.8 kg

DRUGS (3)
  1. NIVESTYM [Suspect]
     Active Substance: FILGRASTIM-AAFI
     Indication: Breast cancer female
     Dosage: 300 UG/ML (FREQUENCY IS GOING TO BE 4 DAYS)
  2. NIVESTYM [Suspect]
     Active Substance: FILGRASTIM-AAFI
     Dosage: 300 UG (FREQUENCY: 4 DAYS)
  3. NIVESTYM [Suspect]
     Active Substance: FILGRASTIM-AAFI
     Dosage: 300 UG (4 DAYS OF 28 DAY CYCLE)

REACTIONS (2)
  - Product prescribing error [Unknown]
  - Loss of personal independence in daily activities [Unknown]
